FAERS Safety Report 9967546 (Version 2)
Quarter: 2014Q1

REPORT INFORMATION
  Report Type: Report from Study
  Country: US (occurrence: US)
  Receive Date: 20140305
  Receipt Date: 20140305
  Transmission Date: 20141002
  Serious: No
  Sender: FDA-Public Use
  Company Number: US-ABBVIE-13P-163-1132385-00

PATIENT
  Age: 58 Year
  Sex: Female

DRUGS (23)
  1. HUMIRA [Suspect]
     Indication: RHEUMATOID ARTHRITIS
     Dosage: ON WEDNESDAY
     Dates: start: 201304
  2. HUMIRA [Suspect]
     Indication: PSORIATIC ARTHROPATHY
     Dates: end: 20130904
  3. METHOTREXATE [Concomitant]
     Indication: PSORIATIC ARTHROPATHY
  4. VALSARTAN/HCTZ [Concomitant]
     Indication: HYPERTENSION
     Dosage: 80/12MG; BEEN ON FOR ABOUT 1.5 YEARS
  5. ONE A DAY [Concomitant]
     Indication: NUTRITIONAL SUPPLEMENTATION
     Dosage: ON AND OFF FOR A WHILE
  6. LEVOTHYROXINE [Concomitant]
     Indication: PRODUCT USED FOR UNKNOWN INDICATION
  7. TRAMADOL [Concomitant]
     Indication: PAIN
     Dosage: 1-2 TIMES A DAY FOR 3-4 YEARS
  8. ALPRAZOLAM [Concomitant]
     Indication: ANXIETY
     Dosage: 1-1.5 TABLETS EVERY NIGHT AT BEDTIME
  9. METHOCARBAMOL [Concomitant]
     Indication: MUSCLE SPASMS
     Dosage: PILLS
  10. NIACIN [Concomitant]
     Indication: MUSCLE SPASMS
     Dosage: EVERY NOW AND THEN FOR A WHILE
  11. CALCIUM [Concomitant]
     Indication: MINERAL SUPPLEMENTATION
     Dosage: BEEN ON THEM A LONG TIME
  12. CALCIUM [Concomitant]
     Indication: MUSCLE SPASMS
  13. MAGNESIUM [Concomitant]
     Indication: PROPHYLAXIS
     Dosage: BEEN ON THEM FOR A LONG TIME
  14. MAGNESIUM [Concomitant]
     Indication: MUSCLE SPASMS
  15. POTASSIUM [Concomitant]
     Indication: MINERAL SUPPLEMENTATION
     Dosage: BEEN ON THEM FOR A LONG TIME
  16. POTASSIUM [Concomitant]
     Indication: MUSCLE SPASMS
  17. VITAMIN D3 [Concomitant]
     Indication: VITAMIN SUPPLEMENTATION
     Dosage: BEEN ON THEM FOR A LONG TIME
  18. VITAMIN D3 [Concomitant]
     Indication: MUSCLE SPASMS
  19. PREDNISONE [Concomitant]
     Indication: PRODUCT USED FOR UNKNOWN INDICATION
  20. PREDNISONE [Concomitant]
     Dosage: 10MG NEXT  4-5 DAYS
  21. VENTOLIN [Concomitant]
     Indication: PRODUCT USED FOR UNKNOWN INDICATION
  22. FOLIC ACID [Concomitant]
     Indication: PRODUCT USED FOR UNKNOWN INDICATION
  23. HYDROCODONE W/ACETAMINOPHEN [Concomitant]
     Indication: PRODUCT USED FOR UNKNOWN INDICATION

REACTIONS (7)
  - Fluid retention [Not Recovered/Not Resolved]
  - Drug effect decreased [Not Recovered/Not Resolved]
  - Arthritis [Not Recovered/Not Resolved]
  - Joint stiffness [Not Recovered/Not Resolved]
  - Movement disorder [Not Recovered/Not Resolved]
  - Muscle spasms [Not Recovered/Not Resolved]
  - Contusion [Unknown]
